FAERS Safety Report 10079243 (Version 2)
Quarter: 2014Q2

REPORT INFORMATION
  Report Type: Other
  Country: GB (occurrence: GB)
  Receive Date: 20140415
  Receipt Date: 20140610
  Transmission Date: 20141212
  Serious: Yes (Death, Hospitalization, Other)
  Sender: FDA-Public Use
  Company Number: GB-TARO PHARMACEUTICALS U.S.A., INC-2014SUN00802

PATIENT
  Age: 84 Year
  Sex: Female

DRUGS (11)
  1. WARFARIN [Suspect]
     Indication: ATRIAL FIBRILLATION
     Dosage: UNK
     Route: 065
     Dates: start: 201105, end: 20131122
  2. WARFARIN [Suspect]
     Indication: CEREBROVASCULAR ACCIDENT
     Dosage: UNK
     Route: 065
     Dates: start: 20140106
  3. ELIQUIS [Suspect]
     Indication: CEREBROVASCULAR ACCIDENT
     Dosage: 2.5 MG, BID
     Route: 048
     Dates: start: 20131204, end: 20140103
  4. ELIQUIS [Suspect]
     Indication: ATRIAL FIBRILLATION
  5. FUROSEMIDE [Suspect]
     Indication: PRODUCT USED FOR UNKNOWN INDICATION
     Dosage: 20 MG, OD
     Route: 065
  6. DOXAZOSIN [Concomitant]
     Dosage: 4 MG, OD
  7. EZETIMIBE [Concomitant]
     Dosage: 20 MG, OD
  8. FELODIPINE [Concomitant]
     Dosage: 10 MG, OD (MR TABS)
  9. ISOSORBIDE MONONITRATE [Concomitant]
     Dosage: 60 MG, OD (MR TABS)
  10. LANSOPRAZOLE [Concomitant]
     Dosage: 15 MG, OD
  11. NICORANDIL [Concomitant]
     Dosage: 4 MG, QD
     Route: 065

REACTIONS (2)
  - Ischaemic stroke [Unknown]
  - Renal impairment [Unknown]
